FAERS Safety Report 14808856 (Version 2)
Quarter: 2018Q2

REPORT INFORMATION
  Report Type: Report from Study
  Country: BR (occurrence: BR)
  Receive Date: 20180425
  Receipt Date: 20180529
  Transmission Date: 20180711
  Serious: Yes (Hospitalization)
  Sender: FDA-Public Use
  Company Number: BR-B.I. PHARMACEUTICALS,INC./RIDGEFIELD-2018-BI-021425

PATIENT
  Age: 71 Year
  Sex: Female
  Weight: 53 kg

DRUGS (6)
  1. MICARDIS [Concomitant]
     Active Substance: TELMISARTAN
     Indication: BLOOD PRESSURE ABNORMAL
     Route: 048
  2. GILOTRIF [Suspect]
     Active Substance: AFATINIB
     Route: 048
  3. LEVODOPA+BENSERAZIDE/TEVA [Concomitant]
     Indication: PARKINSON^S DISEASE
     Route: 048
     Dates: start: 2015
  4. GILOTRIF [Suspect]
     Active Substance: AFATINIB
     Indication: LUNG NEOPLASM MALIGNANT
     Route: 048
     Dates: start: 20180226
  5. DONAREN [Concomitant]
     Active Substance: TRAZODONE HYDROCHLORIDE
     Indication: SLEEP DISORDER
     Route: 048
  6. PURAN [Concomitant]
     Active Substance: LEVOTHYROXINE SODIUM
     Indication: THYROID DISORDER
     Route: 048

REACTIONS (10)
  - Intestinal resection [Recovered/Resolved]
  - Aphthous ulcer [Recovered/Resolved]
  - Swollen tongue [Recovered/Resolved]
  - Rash [Not Recovered/Not Resolved]
  - Nail infection [Not Recovered/Not Resolved]
  - Off label use [Not Recovered/Not Resolved]
  - Skin fissures [Not Recovered/Not Resolved]
  - Skin disorder [Recovered/Resolved]
  - Nail infection [Recovered/Resolved]
  - Diarrhoea [Recovered/Resolved]

NARRATIVE: CASE EVENT DATE: 20180226
